FAERS Safety Report 11132098 (Version 1)
Quarter: 2015Q2

REPORT INFORMATION
  Report Type: Spontaneous
  Country: US (occurrence: US)
  Receive Date: 20150522
  Receipt Date: 20150522
  Transmission Date: 20150821
  Serious: Yes (Hospitalization, Other)
  Sender: FDA-Public Use
  Company Number: US-JNJFOC-20150510554

PATIENT
  Age: 77 Year
  Sex: Female

DRUGS (7)
  1. DILTIAZEM [Concomitant]
     Active Substance: DILTIAZEM
     Route: 065
  2. ASPIRIN. [Suspect]
     Active Substance: ASPIRIN
     Indication: PRODUCT USED FOR UNKNOWN INDICATION
     Route: 065
     Dates: end: 201505
  3. NEXIUM [Concomitant]
     Active Substance: ESOMEPRAZOLE MAGNESIUM
     Route: 065
  4. BENICAR [Concomitant]
     Active Substance: OLMESARTAN MEDOXOMIL
     Route: 065
  5. ALPHAGAN P [Concomitant]
     Active Substance: BRIMONIDINE TARTRATE
     Indication: EYE DISORDER
     Route: 047
  6. XARELTO [Suspect]
     Active Substance: RIVAROXABAN
     Indication: CEREBROVASCULAR ACCIDENT PROPHYLAXIS
     Route: 048
     Dates: start: 20150320, end: 20150511
  7. XARELTO [Suspect]
     Active Substance: RIVAROXABAN
     Indication: ATRIAL FIBRILLATION
     Route: 048
     Dates: start: 20150320, end: 20150511

REACTIONS (5)
  - Asthenia [Unknown]
  - Loss of consciousness [Recovered/Resolved]
  - Retinal haemorrhage [Unknown]
  - Internal haemorrhage [Not Recovered/Not Resolved]
  - Blood iron decreased [Recovering/Resolving]

NARRATIVE: CASE EVENT DATE: 2015
